FAERS Safety Report 5789225-0 (Version None)
Quarter: 2008Q2

REPORT INFORMATION
  Report Type: 
  Country: None (occurrence: None)
  Receive Date: 20080625
  Receipt Date: 20080625
  Transmission Date: 20081010
  Serious: Yes (Other)
  Sender: FDA-Public Use
  Company Number: None

PATIENT
  Age: 41 Year
  Sex: Female
  Weight: 64.4108 kg

DRUGS (1)
  1. CHANTIX [Suspect]

REACTIONS (3)
  - ANGER [None]
  - CRYING [None]
  - DEPRESSION [None]
